FAERS Safety Report 5452605-7 (Version None)
Quarter: 2007Q3

REPORT INFORMATION
  Report Type: 
  Country: None (occurrence: None)
  Receive Date: 20070914
  Receipt Date: 20070903
  Transmission Date: 20080115
  Serious: Yes (Hospitalization)
  Sender: FDA-Public Use
  Company Number: DE-AMGEN-UK235562

PATIENT
  Sex: Male

DRUGS (2)
  1. PANITUMUMAB [Suspect]
     Indication: COLORECTAL CANCER
     Route: 042
     Dates: start: 20070521
  2. FUCIDINE [Concomitant]
     Route: 062
     Dates: start: 20070703, end: 20070717

REACTIONS (3)
  - C-REACTIVE PROTEIN INCREASED [None]
  - DERMAL CYST [None]
  - PYREXIA [None]
